FAERS Safety Report 6202689-3 (Version None)
Quarter: 2009Q2

REPORT INFORMATION
  Report Type: 
  Country: None (occurrence: None)
  Receive Date: 20090526
  Receipt Date: 20090514
  Transmission Date: 20091009
  Serious: Yes (Other)
  Sender: FDA-Public Use
  Company Number: PHHY2009GB14744

PATIENT
  Sex: Male
  Weight: 175 kg

DRUGS (10)
  1. CLOZARIL [Suspect]
     Indication: SCHIZOPHRENIA
     Dosage: UNK
     Dates: start: 20010526
  2. CLOZARIL [Suspect]
     Dosage: 525 MG, UNK
  3. CLOZARIL [Suspect]
     Dosage: 400 MG/DAY
  4. SUDAFED 12 HOUR [Suspect]
     Route: 048
  5. PARACETAMOL [Concomitant]
  6. VALPROATE SODIUM [Concomitant]
     Indication: AFFECTIVE DISORDER
     Dosage: 1600 MG/DAY
     Route: 048
  7. MELATONIN [Concomitant]
     Indication: SLEEP DISORDER
     Dosage: 2.5 MG/DAY
     Route: 048
  8. LANSOPRAZOLE [Concomitant]
     Dosage: 60 MG/DAY
     Route: 048
  9. DOMPERIDONE [Concomitant]
     Dosage: 30 MG/DAY
     Route: 048
  10. NULYTELY [Concomitant]
     Indication: CONSTIPATION
     Dosage: 1 SACHET/DAY
     Route: 048

REACTIONS (3)
  - ANTIPSYCHOTIC DRUG LEVEL INCREASED [None]
  - DRUG ABUSE [None]
  - TREATMENT NONCOMPLIANCE [None]
